FAERS Safety Report 20210284 (Version 1)
Quarter: 2021Q4

REPORT INFORMATION
  Report Type: Spontaneous
  Country: JP (occurrence: JP)
  Receive Date: 20211221
  Receipt Date: 20211221
  Transmission Date: 20220303
  Serious: Yes (Hospitalization, Other)
  Sender: FDA-Public Use
  Company Number: JP-NOVARTISPH-NVSJ2021JP020817

PATIENT
  Age: 36 Year
  Sex: Male

DRUGS (2)
  1. IMATINIB MESYLATE [Suspect]
     Active Substance: IMATINIB MESYLATE
     Indication: Chronic myeloid leukaemia
     Dosage: 400 MG
     Route: 065
  2. IMATINIB MESYLATE [Suspect]
     Active Substance: IMATINIB MESYLATE
     Dosage: 200 MG
     Route: 065

REACTIONS (11)
  - Leukaemic retinopathy [Unknown]
  - Visual acuity reduced [Unknown]
  - Subretinal haematoma [Unknown]
  - Retinal haemorrhage [Unknown]
  - Retinal exudates [Unknown]
  - Retinal vascular disorder [Unknown]
  - Retinal perivascular sheathing [Unknown]
  - Retinal disorder [Unknown]
  - Retinopathy proliferative [Unknown]
  - Tractional retinal detachment [Unknown]
  - Renal impairment [Unknown]
